FAERS Safety Report 9542668 (Version 2)
Quarter: 2013Q3

REPORT INFORMATION
  Report Type: Spontaneous
  Country: US (occurrence: US)
  Receive Date: 20130923
  Receipt Date: 20130926
  Transmission Date: 20140515
  Serious: Yes (Other)
  Sender: FDA-Public Use
  Company Number: US-PFIZER INC-2013270993

PATIENT
  Age: 50 Year
  Sex: Male
  Weight: 104.76 kg

DRUGS (12)
  1. LYRICA [Suspect]
     Indication: SPINAL PAIN
     Dosage: 75 MG ONCE A DAY BEFORE BEDTIME (QHS) FOR 1 WEEK
     Route: 048
  2. LYRICA [Suspect]
     Indication: PAIN
     Dosage: 75 MG, 2X/DAY
     Route: 048
  3. LYRICA [Suspect]
     Indication: HEADACHE
     Dosage: 225 MG, 2X/DAY
     Route: 048
     Dates: start: 20130719
  4. CYMBALTA [Concomitant]
     Dosage: 60 MG AT ONE CAPSULE ONCE A DAY BEFORE BEDTIME (^DR PART QHS^)
  5. ROPINIROLE HYDROCHLORIDE [Concomitant]
     Dosage: 0.25 MG, UNK
     Route: 048
  6. MOBIC [Concomitant]
     Dosage: 7.5 MG TABLET AT 2 TABLETS ORALLY PER DAY
     Route: 048
  7. TRAMADOL HYDROCHLORIDE [Concomitant]
     Dosage: 300MG TABLET ER 24HR AT 1 TABLET ORALLY PER DAY
     Route: 048
  8. PROMETHAZINE HYDROCHLORIDE [Concomitant]
     Dosage: 25MG TABLET AT 2 TABLETS ORALLY PER DAY
     Route: 048
  9. LORTAB [Concomitant]
     Dosage: [HYDROCODONE BITARTRAT 7.5 MG]/ [PARACETAMOL 500 MG] AT 2 TABLETS PER DAY
     Route: 048
  10. LOSARTAN POTASSIUM [Concomitant]
     Dosage: 100 MG TABLET AT 1 TABLET ORALLY PER DAY
     Route: 048
  11. ULTRAM [Concomitant]
     Dosage: 50 MG, UNK
     Route: 048
  12. NEXIUM [Concomitant]
     Dosage: 10 MG, UNK
     Route: 048

REACTIONS (5)
  - Off label use [Unknown]
  - Hepatic function abnormal [Unknown]
  - Night sweats [Unknown]
  - Pain [Unknown]
  - Therapeutic response unexpected [Unknown]
